FAERS Safety Report 9437336 (Version 4)
Quarter: 2014Q2

REPORT INFORMATION
  Report Type: Spontaneous
  Country: FR (occurrence: FR)
  Receive Date: 20130802
  Receipt Date: 20140523
  Transmission Date: 20141212
  Serious: Yes (Life-Threatening, Hospitalization, Other)
  Sender: FDA-Public Use
  Company Number: FR-JNJFOC-20130612098

PATIENT
  Age: 46 Year
  Sex: Male
  Weight: 80 kg

DRUGS (7)
  1. XEPLION [Suspect]
     Indication: PRODUCT USED FOR UNKNOWN INDICATION
     Route: 030
     Dates: start: 20130517
  2. XEPLION [Suspect]
     Indication: PRODUCT USED FOR UNKNOWN INDICATION
     Dosage: DAY 8
     Route: 030
     Dates: start: 20130425
  3. XEPLION [Suspect]
     Indication: PRODUCT USED FOR UNKNOWN INDICATION
     Dosage: DAY 1
     Route: 030
     Dates: start: 20130417
  4. TERCIAN [Concomitant]
     Route: 065
  5. VALIUM [Concomitant]
     Route: 065
  6. VITAMIN B1 [Concomitant]
     Route: 065
  7. VITAMIN B6 [Concomitant]
     Route: 065

REACTIONS (4)
  - Suicidal ideation [Unknown]
  - Depression [Unknown]
  - Generalised tonic-clonic seizure [Recovered/Resolved]
  - Drug dose omission [Unknown]
